FAERS Safety Report 5153191-1 (Version None)
Quarter: 2006Q4

REPORT INFORMATION
  Report Type: 
  Country: None (occurrence: None)
  Receive Date: 20061114
  Receipt Date: 20061031
  Transmission Date: 20070319
  Serious: Yes (Other)
  Sender: FDA-Public Use
  Company Number: GXKR2006HR06951

PATIENT
  Age: 9 Year
  Sex: Female

DRUGS (1)
  1. CEFTRIAXONE [Suspect]
     Indication: BACTERIAL INFECTION
     Dosage: 91 MG/KG, QD, INTRAVENOUS
     Route: 042

REACTIONS (1)
  - CHOLELITHIASIS [None]
